FAERS Safety Report 6603520-4 (Version None)
Quarter: 2010Q1

REPORT INFORMATION
  Report Type: 
  Country: None (occurrence: None)
  Receive Date: 20100226
  Receipt Date: 20090817
  Transmission Date: 20100710
  Serious: No
  Sender: FDA-Public Use
  Company Number: A0803600A

PATIENT
  Age: 27 Year
  Sex: Female

DRUGS (2)
  1. VALTREX [Suspect]
     Indication: GENITAL HERPES
     Dosage: 1G UNKNOWN
     Route: 048
     Dates: end: 20090817
  2. NONE [Concomitant]

REACTIONS (1)
  - RASH [None]
